FAERS Safety Report 4325333-9 (Version None)
Quarter: 2004Q1

REPORT INFORMATION
  Report Type: 
  Country: None (occurrence: None)
  Receive Date: 20040326
  Receipt Date: 20040326
  Transmission Date: 20041129
  Serious: No
  Sender: FDA-Public Use
  Company Number: None

PATIENT
  Age: 41 Year
  Sex: Female
  Weight: 72.5755 kg

DRUGS (1)
  1. PAXIL [Suspect]
     Indication: DEPRESSION
     Dosage: 20 MG 1X/DAILY ORAL
     Route: 048
     Dates: start: 20000101, end: 20040301

REACTIONS (1)
  - DRUG WITHDRAWAL SYNDROME [None]
